FAERS Safety Report 4452949-1 (Version None)
Quarter: 2004Q3

REPORT INFORMATION
  Report Type: 
  Country: None (occurrence: None)
  Receive Date: 20040916
  Receipt Date: 20040901
  Transmission Date: 20050211
  Serious: Yes (Death, Other)
  Sender: FDA-Public Use
  Company Number: 2004-BP-07559RO

PATIENT
  Age: 57 Year
  Sex: Male

DRUGS (2)
  1. DEXAMETHASONE [Suspect]
     Indication: MULTIPLE MYELOMA
     Dosage: 40 MG/DAY EACH CYCLE (# OF DAYS NR) (NR), PO
     Route: 048
     Dates: start: 20020622, end: 20020805
  2. GENASENSE [Suspect]
     Indication: MULTIPLE MYELOMA
     Dosage: 609 MG (NR), IV
     Route: 042
     Dates: start: 20020619, end: 20020626

REACTIONS (4)
  - DISEASE PROGRESSION [None]
  - MULTIPLE MYELOMA [None]
  - PLATELET COUNT DECREASED [None]
  - THERAPY NON-RESPONDER [None]
